FAERS Safety Report 7798054-8 (Version None)
Quarter: 2011Q4

REPORT INFORMATION
  Report Type: 
  Country: None (occurrence: None)
  Receive Date: 20111005
  Receipt Date: 20111003
  Transmission Date: 20120403
  Serious: Yes (Hospitalization)
  Sender: FDA-Public Use
  Company Number: CHPA2011IT12839

PATIENT
  Sex: Male

DRUGS (6)
  1. DECADRON [Concomitant]
     Dosage: 20 MG
     Dates: start: 20110706, end: 20110712
  2. LACTULOSE [Suspect]
     Indication: CONSTIPATION
     Dosage: 2 DF, QD
     Route: 048
     Dates: start: 20110711, end: 20110712
  3. PURSENNIDE [Suspect]
     Dosage: 48 MG, QD
     Route: 048
     Dates: start: 20110624
  4. TRAMADOL HCL [Concomitant]
     Dosage: 100 MG, QD
     Route: 048
     Dates: start: 20090101, end: 20110712
  5. THALIDOMIDE [Concomitant]
     Dosage: 100 MG, QD
     Route: 048
     Dates: start: 20110705, end: 20110712
  6. VELCADE [Concomitant]
     Dosage: 2.3 MG
     Dates: start: 20110705, end: 20110712

REACTIONS (2)
  - HYPONATRAEMIA [None]
  - DEHYDRATION [None]
